FAERS Safety Report 7321634-0 (Version None)
Quarter: 2011Q1

REPORT INFORMATION
  Report Type: 
  Country: None (occurrence: None)
  Receive Date: 20110228
  Receipt Date: 20101004
  Transmission Date: 20110831
  Serious: No
  Sender: FDA-Public Use
  Company Number: A0884774A

PATIENT
  Age: 59 Year
  Sex: Female

DRUGS (5)
  1. LOVASTATIN [Concomitant]
  2. LORAZEPAM [Concomitant]
  3. HYDROCHLOROTHIAZIDE [Concomitant]
  4. VALTREX [Suspect]
     Dosage: 500MG TWICE PER DAY
     Route: 048
     Dates: start: 20100401
  5. NORVASC [Concomitant]

REACTIONS (4)
  - NASAL DISCOMFORT [None]
  - HEADACHE [None]
  - BURNING SENSATION [None]
  - OROPHARYNGEAL PAIN [None]
